FAERS Safety Report 9556480 (Version 1)
Quarter: 2013Q3

REPORT INFORMATION
  Report Type: Spontaneous
  Country: CA (occurrence: None)
  Receive Date: 20130924
  Receipt Date: 20130924
  Transmission Date: 20140515
  Serious: Yes (Other)
  Sender: FDA-Public Use
  Company Number: CA-013002

PATIENT
  Age: 77 Year
  Sex: Male

DRUGS (14)
  1. FIRMAGON [Suspect]
     Indication: PROSTATE CANCER
     Route: 058
     Dates: start: 201303
  2. CELEBREX [Concomitant]
  3. AVALIDE [Concomitant]
  4. SANDOZ-BISOPROLOL [Concomitant]
  5. ELTROXIN [Concomitant]
  6. DETROL LA [Concomitant]
  7. LESCOL [Concomitant]
  8. NOVO-QUININE [Concomitant]
  9. GLUMETZA [Concomitant]
  10. ASPIRIN [Concomitant]
  11. COENZYME [Concomitant]
  12. VITALUX PLUS LUTEIN OMEGA 3 [Concomitant]
  13. CENTRUM SELECT 50+ [Concomitant]
  14. CALCIUM VIT D [Concomitant]

REACTIONS (2)
  - Fall [None]
  - Vertigo [None]
